FAERS Safety Report 18789342 (Version 1)
Quarter: 2021Q1

REPORT INFORMATION
  Report Type: Report from Study
  Country: CL (occurrence: CL)
  Receive Date: 20210126
  Receipt Date: 20210126
  Transmission Date: 20210419
  Serious: Yes (Hospitalization, Other)
  Sender: FDA-Public Use
  Company Number: CL-SANOFI-AVENTIS-2013SA027771

PATIENT
  Age: 42 Year
  Sex: Female
  Weight: 59 kg

DRUGS (14)
  1. METHOTREXATE. [Suspect]
     Active Substance: METHOTREXATE
     Indication: RHEUMATOID ARTHRITIS
     Dosage: UNK UNK,UNK
     Route: 065
     Dates: start: 2006
  2. CLONAZEPAM. [Concomitant]
     Active Substance: CLONAZEPAM
     Dosage: UNK UNK,UNK
     Route: 048
     Dates: end: 20140331
  3. SIMETHICONE (DIMETHICONE) [Concomitant]
     Active Substance: DIMETHICONE
     Dosage: UNK UNK,UNK
     Route: 048
     Dates: start: 20130204, end: 20140331
  4. FOLIC ACID. [Suspect]
     Active Substance: FOLIC ACID
     Indication: PROPHYLAXIS
  5. ESOMEPRAZOLE. [Concomitant]
     Active Substance: ESOMEPRAZOLE MAGNESIUM
     Dosage: UNK UNK,UNK
     Route: 048
  6. CHLORDIAZEPOXIDE. [Concomitant]
     Active Substance: CHLORDIAZEPOXIDE
     Dosage: UNK UNK,UNK
     Route: 048
     Dates: start: 20130204, end: 20130331
  7. METOCLOPRAMIDE [METOCLOPRAMIDE HYDROCHLORIDE] [Concomitant]
     Active Substance: METOCLOPRAMIDE HYDROCHLORIDE
     Dosage: UNK UNK,UNK
     Route: 048
     Dates: start: 20130204, end: 20140331
  8. METHOTREXATE. [Suspect]
     Active Substance: METHOTREXATE
     Dosage: 17.5 MG,QW
     Route: 048
     Dates: start: 20110301, end: 20140211
  9. METHOTREXATE. [Suspect]
     Active Substance: METHOTREXATE
     Dosage: 17.5 MG,QW
     Route: 048
     Dates: start: 20140226
  10. DICLOFENAC [Concomitant]
     Active Substance: DICLOFENAC
     Dosage: UNK UNK,UNK
     Route: 048
     Dates: end: 20140331
  11. LEVOTHYROXINE [LEVOTHYROXINE SODIUM] [Concomitant]
     Active Substance: LEVOTHYROXINE SODIUM
     Dosage: UNK UNK,UNK
     Route: 048
  12. MEBEVERINE [Concomitant]
     Active Substance: MEBEVERINE
     Dosage: UNK UNK,UNK
     Route: 048
     Dates: end: 20140331
  13. FOLIC ACID. [Suspect]
     Active Substance: FOLIC ACID
     Indication: RHEUMATOID ARTHRITIS
     Dosage: 10 MG,QW
     Route: 048
     Dates: start: 2006
  14. SARILUMAB [Suspect]
     Active Substance: SARILUMAB
     Indication: RHEUMATOID ARTHRITIS
     Dosage: 200 MG,QOW
     Route: 058
     Dates: start: 20130117, end: 20140327

REACTIONS (5)
  - Small intestine carcinoma [Recovered/Resolved]
  - Portosplenomesenteric venous thrombosis [Recovered/Resolved]
  - Cervical dysplasia [Recovered/Resolved]
  - Peritonitis [Recovered/Resolved]
  - Bile duct stone [Recovered/Resolved]

NARRATIVE: CASE EVENT DATE: 20130301
